FAERS Safety Report 5862693-1 (Version None)
Quarter: 2008Q3

REPORT INFORMATION
  Report Type: 
  Country: None (occurrence: None)
  Receive Date: 20080828
  Receipt Date: 20080819
  Transmission Date: 20090109
  Serious: Yes (Other)
  Sender: FDA-Public Use
  Company Number: JP-JNJFOC-20080804809

PATIENT
  Age: 69 Year
  Sex: Male
  Weight: 46 kg

DRUGS (15)
  1. DUROTEP [Suspect]
     Route: 062
  2. DUROTEP [Suspect]
     Indication: CANCER PAIN
     Route: 062
  3. OXYCONTIN [Suspect]
     Route: 048
  4. OXYCONTIN [Suspect]
     Indication: DRUG USE FOR UNKNOWN INDICATION
     Route: 048
  5. OXINORM [Suspect]
     Indication: DRUG USE FOR UNKNOWN INDICATION
     Route: 048
  6. PRIMPERAN INJ [Concomitant]
  7. LANSOPRAZOLE [Concomitant]
  8. HYPEN [Concomitant]
     Route: 048
  9. PREDNISOLONE [Concomitant]
     Route: 048
  10. ZOMETA [Concomitant]
  11. MAGMITT [Concomitant]
     Route: 048
  12. PANTOSIN [Concomitant]
  13. KN-3B [Concomitant]
     Route: 041
  14. SOLITA-T [Concomitant]
     Route: 041
  15. ALKERAN [Concomitant]

REACTIONS (2)
  - DELIRIUM [None]
  - HALLUCINATION [None]
